FAERS Safety Report 8249896-6 (Version None)
Quarter: 2012Q2

REPORT INFORMATION
  Report Type: 
  Country: None (occurrence: None)
  Receive Date: 20120402
  Receipt Date: 20120330
  Transmission Date: 20120825
  Serious: Yes (Death, Hospitalization)
  Sender: FDA-Public Use
  Company Number: PHFR2011GB006678

PATIENT
  Sex: Male

DRUGS (7)
  1. CLOZARIL [Suspect]
     Indication: MANIA
     Dosage: 400 MG NOCTE
     Route: 048
     Dates: start: 20080418, end: 20111019
  2. HYOSCINE [Concomitant]
  3. IBUPROFEN [Concomitant]
     Indication: BACK PAIN
  4. AMLODIPINE [Concomitant]
  5. OMEPRAZOLE [Concomitant]
  6. DEPAKOTE [Concomitant]
     Indication: SCHIZOAFFECTIVE DISORDER
     Dosage: 750 MG, UNK
  7. RAMIPRIL [Concomitant]
     Indication: HYPERTENSION

REACTIONS (3)
  - DYSPHAGIA [None]
  - OESOPHAGEAL CARCINOMA [None]
  - GENERAL PHYSICAL HEALTH DETERIORATION [None]
